FAERS Safety Report 4829984-4 (Version None)
Quarter: 2005Q4

REPORT INFORMATION
  Report Type: 
  Country: None (occurrence: None)
  Receive Date: 20051117
  Receipt Date: 20051107
  Transmission Date: 20060501
  Serious: Yes (Disabling)
  Sender: FDA-Public Use
  Company Number: GB-JNJFOC-20051101963

PATIENT
  Age: 13 Year
  Sex: Male
  Weight: 40.85 kg

DRUGS (1)
  1. TOPAMAX [Suspect]
     Indication: PARTIAL SEIZURES
     Dosage: 25-300MG/DAY
     Route: 048
     Dates: start: 20050126, end: 20050526

REACTIONS (4)
  - ABNORMAL BEHAVIOUR [None]
  - AGGRESSION [None]
  - HALLUCINATION, AUDITORY [None]
  - SCHOOL REFUSAL [None]
